FAERS Safety Report 21221716 (Version 1)
Quarter: 2022Q3

REPORT INFORMATION
  Report Type: Report from Study
  Country: CA (occurrence: CA)
  Receive Date: 20220817
  Receipt Date: 20220817
  Transmission Date: 20221027
  Serious: Yes (Hospitalization)
  Sender: FDA-Public Use
  Company Number: None

PATIENT
  Age: 50 Year
  Sex: Female

DRUGS (6)
  1. ATORVASTATIN [Suspect]
     Active Substance: ATORVASTATIN
     Indication: Acute myocardial infarction
     Route: 065
  2. ASPIRIN [Concomitant]
     Active Substance: ASPIRIN
     Route: 065
  3. CEFTRIAXONE SODIUM [Concomitant]
     Active Substance: CEFTRIAXONE SODIUM
     Dosage: INJECTION BP
  4. CITALOPRAM [Concomitant]
     Active Substance: CITALOPRAM HYDROBROMIDE
  5. METRONIDAZOLE [Concomitant]
     Active Substance: METRONIDAZOLE
  6. RAMIPRIL [Concomitant]
     Active Substance: RAMIPRIL

REACTIONS (2)
  - Drug reaction with eosinophilia and systemic symptoms [Recovered/Resolved]
  - Liver injury [Recovered/Resolved]
